FAERS Safety Report 8033517-1 (Version None)
Quarter: 2011Q4

REPORT INFORMATION
  Report Type: 
  Country: None (occurrence: None)
  Receive Date: 20111202
  Receipt Date: 20110204
  Transmission Date: 20120403
  Serious: Yes (Other)
  Sender: FDA-Public Use
  Company Number: WAES 0805USA00390

PATIENT
  Age: 51 Year
  Sex: Female
  Weight: 53.5244 kg

DRUGS (2)
  1. FOSAMAX [Suspect]
     Indication: OSTEOPOROSIS
     Dosage: 70 MG/UNK/PO 10 MG/DAILY/PO
     Route: 048
     Dates: end: 20060601
  2. FOSAMAX [Suspect]
     Indication: OSTEOPOROSIS
     Dosage: 70 MG/UNK/PO 10 MG/DAILY/PO
     Route: 048
     Dates: start: 20020801, end: 20060601

REACTIONS (17)
  - SLEEP DISORDER [None]
  - OSTEOPENIA [None]
  - HYPERCHOLESTEROLAEMIA [None]
  - OSTEITIS [None]
  - HYPERLIPIDAEMIA [None]
  - SWELLING [None]
  - JAW DISORDER [None]
  - OSTEONECROSIS [None]
  - BONE DISORDER [None]
  - ABSCESS ORAL [None]
  - ECZEMA [None]
  - TEMPOROMANDIBULAR JOINT SYNDROME [None]
  - LIMB DISCOMFORT [None]
  - CHEST PAIN [None]
  - SKIN PAPILLOMA [None]
  - SKIN DISORDER [None]
  - INFLAMMATION [None]
